FAERS Safety Report 4673169-1 (Version None)
Quarter: 2005Q2

REPORT INFORMATION
  Report Type: 
  Country: None (occurrence: None)
  Receive Date: 20050523
  Receipt Date: 20050523
  Transmission Date: 20051028
  Serious: Yes (Other)
  Sender: FDA-Public Use
  Company Number: None

PATIENT
  Age: 75 Year
  Sex: Male
  Weight: 75.8 kg

DRUGS (5)
  1. ETODOLAC [Suspect]
  2. COLCHICINE [Concomitant]
  3. PRENISONE [Concomitant]
  4. MECLIZINE HCL [Concomitant]
  5. ALBUTEROL [Concomitant]

REACTIONS (1)
  - RASH [None]
